FAERS Safety Report 17389460 (Version 1)
Quarter: 2020Q1

REPORT INFORMATION
  Report Type: Spontaneous
  Country: US (occurrence: US)
  Receive Date: 20200123
  Receipt Date: 20200123
  Transmission Date: 20200409
  Serious: Yes (Hospitalization)
  Sender: FDA-Public Use
  Company Number: None

PATIENT
  Age: 62 Year
  Sex: Male

DRUGS (12)
  1. LISINOPRIL TABLET 10MG [Concomitant]
     Active Substance: LISINOPRIL
  2. OLAPARIB 150MG [Suspect]
     Active Substance: OLAPARIB
     Indication: PANCREATIC CARCINOMA
     Route: 048
     Dates: start: 20191104, end: 20191108
  3. KETOCONAZOLE SHAMPOO 2% [Concomitant]
     Active Substance: KETOCONAZOLE
  4. MIRALAX [Concomitant]
     Active Substance: POLYETHYLENE GLYCOL 3350
  5. CREON [Concomitant]
     Active Substance: PANCRELIPASE AMYLASE\PANCRELIPASE LIPASE\PANCRELIPASE PROTEASE
  6. ASPIRIN. [Concomitant]
     Active Substance: ASPIRIN
  7. PROCHLORPERAZINE TABLET [Concomitant]
  8. OXYCODONE TABLET [Concomitant]
     Active Substance: OXYCODONE
  9. VITAMIN D3 [Concomitant]
     Active Substance: CHOLECALCIFEROL
  10. SENNA [Concomitant]
     Active Substance: SENNA LEAF\SENNOSIDES\SENNOSIDES A AND B
  11. TIZANIDINE HCL [Concomitant]
     Active Substance: TIZANIDINE HYDROCHLORIDE
  12. AMLODIPINE BESYLATE TABLET [Concomitant]
     Active Substance: AMLODIPINE BESYLATE

REACTIONS (1)
  - Pancreatitis acute [None]

NARRATIVE: CASE EVENT DATE: 20191113
